FAERS Safety Report 9266736 (Version 1)
Quarter: 2013Q2

REPORT INFORMATION
  Report Type: Spontaneous
  Country: US (occurrence: US)
  Receive Date: 20130502
  Receipt Date: 20130502
  Transmission Date: 20140414
  Serious: Yes (Other)
  Sender: FDA-Public Use
  Company Number: US-PFIZER INC-2013133331

PATIENT
  Age: 83 Year
  Sex: Male
  Weight: 63.49 kg

DRUGS (3)
  1. LOPID [Suspect]
     Indication: BLOOD CHOLESTEROL INCREASED
     Dosage: 600 MG, UNK
  2. ACCUPRIL [Suspect]
     Indication: HYPERTENSION
     Dosage: 40 MG, UNK
  3. LIPITOR [Suspect]
     Indication: BLOOD CHOLESTEROL INCREASED
     Dosage: UNK

REACTIONS (5)
  - Accident [Unknown]
  - Ligament sprain [Unknown]
  - Cartilage injury [Recovered/Resolved]
  - Arthralgia [Unknown]
  - Pain [Recovered/Resolved]
